FAERS Safety Report 6738469-X (Version None)
Quarter: 2010Q2

REPORT INFORMATION
  Report Type: 
  Country: None (occurrence: None)
  Receive Date: 20100524
  Receipt Date: 20100511
  Transmission Date: 20101027
  Serious: Yes (Other)
  Sender: FDA-Public Use
  Company Number: PHHY2010NL30078

PATIENT
  Age: 71 Year
  Sex: Female

DRUGS (2)
  1. DIOVAN [Suspect]
     Indication: HYPERTENSION
     Dosage: 160 MG, BID
  2. DIOVAN [Suspect]
     Dosage: UNK, 80 MG IN THE MORNING AND 160 MG IN THE EVENING

REACTIONS (8)
  - ABDOMINAL PAIN [None]
  - CYSTITIS [None]
  - GALLBLADDER DISORDER [None]
  - HEPATIC STEATOSIS [None]
  - LIVER DISORDER [None]
  - MYALGIA [None]
  - RENAL CYST [None]
  - UTERINE MASS [None]
